FAERS Safety Report 11603569 (Version 1)
Quarter: 2015Q4

REPORT INFORMATION
  Report Type: Spontaneous
  Country: US (occurrence: US)
  Receive Date: 20151007
  Receipt Date: 20151007
  Transmission Date: 20160304
  Serious: No
  Sender: FDA-Public Use
  Company Number: US-AMGEN-USASP2015103028

PATIENT
  Age: 46 Year
  Sex: Male

DRUGS (6)
  1. CALCIUM CARBONATE. [Concomitant]
     Active Substance: CALCIUM CARBONATE
     Dosage: 500 UNK, UNK
  2. ENBREL [Suspect]
     Active Substance: ETANERCEPT
     Indication: RHEUMATOID ARTHRITIS
     Dosage: 50 MG, QWK
     Route: 058
     Dates: start: 20150402
  3. ENBREL [Suspect]
     Active Substance: ETANERCEPT
     Indication: IRITIS
  4. BROMFENAC SODIUM [Concomitant]
     Active Substance: BROMFENAC SODIUM
     Dosage: UNK
  5. PREDNISOLONE ACETATE. [Concomitant]
     Active Substance: PREDNISOLONE ACETATE
     Dosage: UNK
  6. B COMPLEX                          /00322001/ [Concomitant]
     Dosage: UNK

REACTIONS (1)
  - Injection site haemorrhage [Not Recovered/Not Resolved]

NARRATIVE: CASE EVENT DATE: 2015
